FAERS Safety Report 23580499 (Version 3)
Quarter: 2024Q2

REPORT INFORMATION
  Report Type: Report from Study
  Country: CA (occurrence: CA)
  Receive Date: 20240229
  Receipt Date: 20240503
  Transmission Date: 20240716
  Serious: Yes (Other)
  Sender: FDA-Public Use
  Company Number: CA-JNJFOC-20240155458

PATIENT
  Age: 15 Year
  Sex: Female
  Weight: 49 kg

DRUGS (2)
  1. REMICADE [Suspect]
     Active Substance: INFLIXIMAB
     Indication: Crohn^s disease
     Dosage: BATCH:23D106, 23C037,23D125 EXPIRY: JUN-2026, THE PATIENT RECEIVED 21 INFUSIONS TOTALLY.?THE LATEST
     Route: 041
     Dates: start: 20220114
  2. REMICADE [Suspect]
     Active Substance: INFLIXIMAB
     Route: 041

REACTIONS (2)
  - Crohn^s disease [Recovered/Resolved]
  - Off label use [Unknown]
